FAERS Safety Report 10057916 (Version 1)
Quarter: 2014Q2

REPORT INFORMATION
  Report Type: Spontaneous
  Country: US (occurrence: None)
  Receive Date: 20140403
  Receipt Date: 20140403
  Transmission Date: 20141212
  Serious: Yes (Death)
  Sender: FDA-Public Use
  Company Number: None

PATIENT
  Age: 55 Year
  Sex: Male
  Weight: 81.65 kg

DRUGS (1)
  1. JANUVIA [Suspect]
     Indication: DIABETES MELLITUS INADEQUATE CONTROL

REACTIONS (5)
  - Pancreatic carcinoma metastatic [None]
  - Metastases to liver [None]
  - Metastases to biliary tract [None]
  - Procedural pain [None]
  - Anaesthetic complication [None]
